FAERS Safety Report 14154785 (Version 1)
Quarter: 2017Q4

REPORT INFORMATION
  Report Type: Spontaneous
  Country: US (occurrence: US)
  Receive Date: 20171102
  Receipt Date: 20171102
  Transmission Date: 20180321
  Serious: Yes (Disabling)
  Sender: FDA-Public Use
  Company Number: None

PATIENT
  Age: 51 Year
  Sex: Female
  Weight: 75.6 kg

DRUGS (9)
  1. VITAMIN D3 [Concomitant]
     Active Substance: CHOLECALCIFEROL
  2. IRON [Concomitant]
     Active Substance: IRON
  3. PROBIOTICS [Concomitant]
     Active Substance: PROBIOTICS NOS
  4. VITAMIN B COMPLEX [Concomitant]
     Active Substance: CYANOCOBALAMIN\DEXPANTHENOL\NIACINAMIDE\PYRIDOXINE HYDROCHLORIDE\RIBOFLAVIN 5^-PHOSPHATE SODIUM\THIAMINE HYDROCHLORIDE\VITAMIN B COMPLEX
  5. GUAIFANESIN [Concomitant]
  6. MULTI VITAMINS [Concomitant]
     Active Substance: VITAMINS
  7. SELENIUM [Concomitant]
     Active Substance: SELENIUM
  8. AMOXICILLIN 500 MG CAPSULE [Suspect]
     Active Substance: AMOXICILLIN SODIUM
     Indication: RESPIRATORY TRACT INFECTION BACTERIAL
     Dosage: ?          QUANTITY:1 CAPSULE(S);?
     Route: 048
  9. MAGNESIUM [Concomitant]
     Active Substance: MAGNESIUM

REACTIONS (10)
  - Burning sensation [None]
  - Headache [None]
  - Dyspnoea [None]
  - Palpitations [None]
  - Discomfort [None]
  - Drug intolerance [None]
  - Condition aggravated [None]
  - Haemorrhoids [None]
  - Productive cough [None]
  - Vein disorder [None]

NARRATIVE: CASE EVENT DATE: 20171028
